FAERS Safety Report 7964116-5 (Version None)
Quarter: 2011Q4

REPORT INFORMATION
  Report Type: 
  Country: None (occurrence: None)
  Receive Date: 20111208
  Receipt Date: 20111129
  Transmission Date: 20120403
  Serious: Yes (Hospitalization)
  Sender: FDA-Public Use
  Company Number: CA-SP-2011-04550

PATIENT
  Sex: Female

DRUGS (2)
  1. SYMBICORT [Concomitant]
     Indication: ASTHMA
     Route: 050
  2. TUBERSOL [Suspect]
     Indication: TUBERCULIN TEST
     Dosage: NOT REPORTED
     Route: 050
     Dates: start: 20090211, end: 20090211

REACTIONS (9)
  - CHEST DISCOMFORT [None]
  - DYSPNOEA [None]
  - PHARYNGEAL OEDEMA [None]
  - PAIN IN EXTREMITY [None]
  - PARAESTHESIA [None]
  - DYSGEUSIA [None]
  - ANAPHYLACTIC REACTION [None]
  - THROAT IRRITATION [None]
  - PARAESTHESIA ORAL [None]
